FAERS Safety Report 5229725-5 (Version None)
Quarter: 2007Q1

REPORT INFORMATION
  Report Type: 
  Country: None (occurrence: None)
  Receive Date: 20070206
  Receipt Date: 20070128
  Transmission Date: 20070707
  Serious: Yes (Death, Other)
  Sender: FDA-Public Use
  Company Number: EG-PFIZER INC-2007005092

PATIENT
  Age: 67 Year
  Sex: Male

DRUGS (4)
  1. SOLU-MEDROL [Suspect]
     Indication: ASTHMA
     Route: 042
     Dates: start: 20070111, end: 20070111
  2. ANTIBIOTICS [Concomitant]
     Route: 042
     Dates: start: 20070111
  3. ANTIHISTAMINES [Concomitant]
     Route: 048
     Dates: start: 20070111
  4. CARDIAC THERAPY [Concomitant]
     Route: 048
     Dates: start: 20070111

REACTIONS (2)
  - CARDIAC DISORDER [None]
  - TUBERCULOSIS [None]
